FAERS Safety Report 12443191 (Version 3)
Quarter: 2016Q3

REPORT INFORMATION
  Report Type: Report from Study
  Country: DE (occurrence: DE)
  Receive Date: 20160607
  Receipt Date: 20160928
  Transmission Date: 20161109
  Serious: Yes (Hospitalization, Other)
  Sender: FDA-Public Use
  Company Number: DE-ABBVIE-16K-062-1643608-00

PATIENT
  Age: 52 Year
  Sex: Male
  Weight: 90 kg

DRUGS (5)
  1. MOXONIDINE [Concomitant]
     Active Substance: MOXONIDINE
     Indication: HYPERTONIA
  2. HUMIRA [Suspect]
     Active Substance: ADALIMUMAB
     Indication: PSORIASIS
     Route: 058
     Dates: start: 20131106
  3. ENAHEXAL [Concomitant]
     Active Substance: ENALAPRIL MALEATE
     Indication: HYPERTONIA
  4. BISOHEXAL [Concomitant]
     Active Substance: BISOPROLOL FUMARATE
     Indication: MYOCARDIAL ISCHAEMIA
  5. XARELTO [Concomitant]
     Active Substance: RIVAROXABAN
     Indication: MYOCARDIAL ISCHAEMIA

REACTIONS (6)
  - Haemorrhage [Unknown]
  - Asthenia [Unknown]
  - Psoriasis [Unknown]
  - Arrhythmia [Not Recovered/Not Resolved]
  - Atrial flutter [Not Recovered/Not Resolved]
  - Atrial fibrillation [Not Recovered/Not Resolved]

NARRATIVE: CASE EVENT DATE: 20160201
